FAERS Safety Report 13393695 (Version 5)
Quarter: 2018Q2

REPORT INFORMATION
  Report Type: Report from Study
  Country: US (occurrence: US)
  Receive Date: 20170331
  Receipt Date: 20180426
  Transmission Date: 20180711
  Serious: Yes (Hospitalization)
  Sender: FDA-Public Use
  Company Number: US-ACTELION-A-US2017-151550

PATIENT
  Age: 20 Year
  Sex: Male

DRUGS (15)
  1. FLONASE [Concomitant]
     Active Substance: FLUTICASONE PROPIONATE
     Dosage: 1 SPRAY, BID
     Dates: start: 20161003
  2. MELATONIN [Concomitant]
     Active Substance: MELATONIN
     Dosage: 3 MG, UNK
     Route: 048
     Dates: start: 20161003
  3. TUSSIN [Concomitant]
     Active Substance: GUAIFENESIN
     Dosage: 1 DF, PRN
     Route: 048
     Dates: start: 20161003
  4. CETIRIZ-D [Concomitant]
     Dosage: 10 ML, QPM
     Route: 048
     Dates: start: 20161003
  5. GABAPENTIN. [Concomitant]
     Active Substance: GABAPENTIN
     Dosage: 600 MG, QPM
     Route: 048
     Dates: start: 20161003
  6. SALINE [Concomitant]
     Active Substance: SODIUM CHLORIDE
     Dosage: 1 DF, QD
     Route: 055
     Dates: start: 20161003
  7. TOPIRAMATE. [Concomitant]
     Active Substance: TOPIRAMATE
     Dosage: UNK
     Route: 048
     Dates: start: 20161003
  8. ZAVESCA [Suspect]
     Active Substance: MIGLUSTAT
     Dosage: 100 MG,VIA G-TUBE AS DIRECTED
     Route: 049
  9. MIDAZOLAM [Concomitant]
     Active Substance: MIDAZOLAM HYDROCHLORIDE
     Dosage: UNK
     Dates: start: 20161003
  10. GLYCOPYRROLATE. [Concomitant]
     Active Substance: GLYCOPYRROLATE
     Dosage: 1 MG, TID
     Route: 048
     Dates: start: 20161003
  11. FLONASE [Concomitant]
     Active Substance: FLUTICASONE PROPIONATE
     Dosage: 2 PUFF, BID EACH NOSTRIL
     Route: 045
     Dates: start: 20161003
  12. OXCARBAZEPINE. [Concomitant]
     Active Substance: OXCARBAZEPINE
     Dosage: 30 ML, UNK
     Route: 048
     Dates: start: 20161003
  13. ZAVESCA [Suspect]
     Active Substance: MIGLUSTAT
     Indication: NIEMANN-PICK DISEASE
     Dosage: 200 MG VIA G-TUBE IN AM AND 100 MG PM
     Route: 048
     Dates: start: 20161003
  14. TRIAMCINOLONE ACETONIDE. [Concomitant]
     Active Substance: TRIAMCINOLONE ACETONIDE
     Dosage: 1 DF, QD
     Route: 061
     Dates: start: 20161003
  15. ACETAMINOPHEN. [Concomitant]
     Active Substance: ACETAMINOPHEN
     Dosage: 325 MG, PRN
     Route: 048
     Dates: start: 20161003

REACTIONS (4)
  - Pneumonia [Unknown]
  - Upper respiratory tract infection [Unknown]
  - Dyspnoea [Recovered/Resolved]
  - Gastrointestinal tube insertion [Unknown]

NARRATIVE: CASE EVENT DATE: 20180107
